FAERS Safety Report 8832549 (Version 4)
Quarter: 2013Q2

REPORT INFORMATION
  Report Type: Report from Study
  Country: JP (occurrence: JP)
  Receive Date: 20121010
  Receipt Date: 20130624
  Transmission Date: 20140414
  Serious: Yes (Hospitalization, Other)
  Sender: FDA-Public Use
  Company Number: JP-009507513-2012SP031071

PATIENT
  Age: 56 Year
  Sex: Male
  Weight: 48 kg

DRUGS (14)
  1. PEGINTRON [Suspect]
     Indication: CHRONIC HEPATITIS C
     Dosage: 1.5 MICROGRAM PER KILOGRAM, QW
     Route: 058
     Dates: start: 20120406, end: 20120511
  2. PEGINTRON [Suspect]
     Dosage: 60 MICROGRAM, QW
     Route: 058
     Dates: start: 20120512, end: 20120623
  3. REBETOL [Suspect]
     Indication: CHRONIC HEPATITIS C
     Dosage: 600 MG, QD
     Route: 048
     Dates: start: 20120406, end: 20120427
  4. REBETOL [Suspect]
     Dosage: 400 MG, QD
     Route: 048
     Dates: start: 20120428, end: 20120511
  5. REBETOL [Suspect]
     Dosage: 200 MG, QD
     Route: 048
     Dates: start: 20120601, end: 20120614
  6. REBETOL [Suspect]
     Dosage: 300 MG, QD
     Route: 048
     Dates: start: 20120615, end: 20120629
  7. TELAVIC [Suspect]
     Indication: CHRONIC HEPATITIS C
     Dosage: 2250 MG, QD
     Route: 048
     Dates: start: 20120406, end: 20120521
  8. TELAVIC [Suspect]
     Dosage: 1500 MG, QD
     Route: 048
     Dates: start: 20120522, end: 20120629
  9. OMEPRAL [Concomitant]
     Indication: PANCREATIC NEUROENDOCRINE TUMOUR
     Dosage: 40 MG, QD
     Route: 048
  10. MUCOSTA [Concomitant]
     Indication: PANCREATIC NEUROENDOCRINE TUMOUR
     Dosage: 300 MG, QD
     Route: 048
     Dates: end: 20120719
  11. CALONAL [Concomitant]
     Indication: PROPHYLAXIS
     Dosage: 1200 MG, QD
     Route: 048
     Dates: start: 20120406, end: 20120420
  12. CALONAL [Concomitant]
     Dosage: 1200MG,QD
     Route: 048
     Dates: start: 20120519, end: 20120629
  13. THIATON [Concomitant]
     Indication: ABDOMINAL PAIN
     Dosage: 3 DF, QD
     Route: 048
     Dates: start: 20120413, end: 20120420
  14. STROCAIN (OXETHAZAINE) [Concomitant]
     Indication: ABDOMINAL PAIN
     Dosage: 15 MG, QD
     Route: 048
     Dates: start: 20120501, end: 20120515

REACTIONS (3)
  - Anaemia [Recovered/Resolved]
  - Enteritis [Recovered/Resolved]
  - Colitis [Recovered/Resolved]
